FAERS Safety Report 19972671 (Version 1)
Quarter: 2021Q4

REPORT INFORMATION
  Report Type: Spontaneous
  Country: US (occurrence: US)
  Receive Date: 20211019
  Receipt Date: 20211019
  Transmission Date: 20220303
  Serious: Yes (Hospitalization)
  Sender: FDA-Public Use
  Company Number: US-ALMIRALL, LLC-2021AQU000477

PATIENT

DRUGS (1)
  1. ACTICLATE [Suspect]
     Active Substance: DOXYCYCLINE HYCLATE
     Indication: Product used for unknown indication
     Dosage: 100 MG, BID FOR 10 DAYS

REACTIONS (1)
  - Acquired haemophilia [Recovered/Resolved]
